FAERS Safety Report 7564344-7 (Version None)
Quarter: 2011Q2

REPORT INFORMATION
  Report Type: 
  Country: None (occurrence: None)
  Receive Date: 20110622
  Receipt Date: 20110609
  Transmission Date: 20111010
  Serious: Yes (Other)
  Sender: FDA-Public Use
  Company Number: PHHY2011DE51651

PATIENT
  Age: 67 Year
  Sex: Female

DRUGS (3)
  1. CORTISONE [Concomitant]
  2. ZOMETA [Suspect]
     Dosage: ONE MONTH
     Route: 042
     Dates: start: 20080901, end: 20090302
  3. CHEMOTHERAPEUTICS NOS [Concomitant]

REACTIONS (2)
  - OSTEONECROSIS OF JAW [None]
  - ABSCESS [None]
